FAERS Safety Report 5450837-5 (Version None)
Quarter: 2007Q3

REPORT INFORMATION
  Report Type: 
  Country: None (occurrence: None)
  Receive Date: 20070913
  Receipt Date: 20070906
  Transmission Date: 20080115
  Serious: Yes (Other)
  Sender: FDA-Public Use
  Company Number: PHFR2003GB00687

PATIENT
  Age: 32 Year
  Sex: Male
  Weight: 68 kg

DRUGS (9)
  1. NEORAL [Suspect]
     Indication: RENAL TRANSPLANT
     Dosage: 250 MG, BID
     Route: 048
     Dates: start: 20030116
  2. MYCOPHENOLATE MOFETIL [Suspect]
     Indication: RENAL TRANSPLANT
     Dosage: 1 G, BID
     Route: 048
     Dates: start: 20030116
  3. PREDNISOLONE [Concomitant]
     Indication: RENAL TRANSPLANT
     Dosage: 20 MG, QD
     Route: 048
     Dates: start: 20030116
  4. VALTREX [Suspect]
     Indication: ANTIVIRAL PROPHYLAXIS
     Dosage: 1 G, BID
     Route: 048
     Dates: start: 20030116
  5. SEPTRIN [Concomitant]
     Indication: PROPHYLAXIS
     Dosage: 480 MG, QD
     Route: 048
  6. RANITIDINE [Concomitant]
     Dosage: 150 MG, QD
     Route: 048
     Dates: start: 20030116
  7. RANITIDINE [Concomitant]
     Dosage: 300 MG, QD
     Dates: start: 20030116
  8. ASPIRIN [Concomitant]
     Dosage: 75 MG, QD
     Route: 048
     Dates: start: 20030116
  9. NYSTATIN [Concomitant]
     Dosage: 4 DF
     Route: 048
     Dates: start: 20030116

REACTIONS (5)
  - CHILLS [None]
  - HOT FLUSH [None]
  - INSOMNIA [None]
  - MALAISE [None]
  - PYREXIA [None]
